FAERS Safety Report 15844812 (Version 5)
Quarter: 2019Q3

REPORT INFORMATION
  Report Type: Report from Study
  Country: US (occurrence: US)
  Receive Date: 20190118
  Receipt Date: 20190703
  Transmission Date: 20191004
  Serious: No
  Sender: FDA-Public Use
  Company Number: PHEH2019US002597

PATIENT
  Sex: Female

DRUGS (3)
  1. COSENTYX [Suspect]
     Active Substance: SECUKINUMAB
     Indication: PSORIASIS
     Dosage: UNK (PREFILLED SYRINGE)
     Route: 065
     Dates: start: 20190104
  2. COSENTYX [Suspect]
     Active Substance: SECUKINUMAB
     Dosage: 2 DF, Q4W
     Route: 065
  3. COSENTYX [Suspect]
     Active Substance: SECUKINUMAB
     Dosage: UNK (SENSOREADY PEN)
     Route: 065

REACTIONS (7)
  - Hyperventilation [Unknown]
  - Rash [Unknown]
  - Malaise [Unknown]
  - Injection site haemorrhage [Unknown]
  - Injection site pain [Unknown]
  - Crying [Unknown]
  - Conversion disorder [Unknown]
